FAERS Safety Report 5011889-X (Version None)
Quarter: 2006Q2

REPORT INFORMATION
  Report Type: 
  Country: None (occurrence: None)
  Receive Date: 20060524
  Receipt Date: 20060524
  Transmission Date: 20061013
  Serious: Yes (Hospitalization)
  Sender: FDA-Public Use
  Company Number: None

PATIENT

DRUGS (1)
  1. AMITRIPTYLINE HCL [Suspect]
     Indication: INSOMNIA
     Dosage: 100 MG   2 QHS  PO
     Route: 048

REACTIONS (6)
  - AGITATION [None]
  - CONVULSION [None]
  - HYPERTENSION [None]
  - MENTAL STATUS CHANGES [None]
  - OVERDOSE [None]
  - TACHYCARDIA [None]
